FAERS Safety Report 18327942 (Version 1)
Quarter: 2020Q3

REPORT INFORMATION
  Report Type: Spontaneous
  Country: US (occurrence: US)
  Receive Date: 20200930
  Receipt Date: 20200930
  Transmission Date: 20201103
  Serious: No
  Sender: FDA-Public Use
  Company Number: US-TEVA-2020-US-1833624

PATIENT
  Sex: Male

DRUGS (1)
  1. BUPRENORPHINE TEVA [Suspect]
     Active Substance: BUPRENORPHINE
     Route: 062

REACTIONS (3)
  - Skin irritation [Unknown]
  - Skin laceration [Unknown]
  - Rash [Unknown]
